FAERS Safety Report 5316748-0 (Version None)
Quarter: 2007Q2

REPORT INFORMATION
  Report Type: 
  Country: None (occurrence: None)
  Receive Date: 20070501
  Receipt Date: 20070501
  Transmission Date: 20071010
  Serious: No
  Sender: FDA-Public Use
  Company Number: None

PATIENT
  Sex: Female
  Weight: 68.0396 kg

DRUGS (2)
  1. ZELNORM [Suspect]
     Indication: CONSTIPATION
     Dosage: 2 TABLETS DAILY EVERY MORNING PO
     Route: 048
     Dates: start: 20050101, end: 20070426
  2. ZELNORM [Suspect]
     Indication: INTESTINAL FUNCTIONAL DISORDER
     Dosage: 2 TABLETS DAILY EVERY MORNING PO
     Route: 048
     Dates: start: 20050101, end: 20070426

REACTIONS (1)
  - PALPITATIONS [None]
